FAERS Safety Report 13498629 (Version 6)
Quarter: 2018Q1

REPORT INFORMATION
  Report Type: Spontaneous
  Country: US (occurrence: US)
  Receive Date: 20170501
  Receipt Date: 20180305
  Transmission Date: 20180508
  Serious: Yes (Other)
  Sender: FDA-Public Use
  Company Number: US-PFIZER INC-2015329748

PATIENT
  Age: 77 Year
  Sex: Female

DRUGS (4)
  1. LYRICA [Suspect]
     Active Substance: PREGABALIN
     Indication: PAIN
     Dosage: 75 MG, 2X/DAY
     Route: 048
  2. LYRICA [Suspect]
     Active Substance: PREGABALIN
     Indication: NEURALGIA
     Dosage: 75 MG, 3X/DAY
     Route: 048
  3. LYRICA [Suspect]
     Active Substance: PREGABALIN
     Indication: PAIN IN EXTREMITY
     Dosage: 75 MG, 4X/DAY
     Route: 048
  4. HYDROCODONE [Concomitant]
     Active Substance: HYDROCODONE
     Indication: RIB FRACTURE
     Dosage: 10-325MG ONE TABLET FOUR TIMES AS NEEDED (TRIES TO TAKE 3 OR LESS A DAY)
     Route: 048

REACTIONS (8)
  - Drug ineffective [Unknown]
  - Drug dependence [Unknown]
  - Visual impairment [Unknown]
  - Dyspnoea [Unknown]
  - Pain [Not Recovered/Not Resolved]
  - Weight fluctuation [Unknown]
  - Insomnia [Unknown]
  - Condition aggravated [Not Recovered/Not Resolved]
